FAERS Safety Report 11037772 (Version 7)
Quarter: 2015Q3

REPORT INFORMATION
  Report Type: Report from Study
  Country: ES (occurrence: ES)
  Receive Date: 20150416
  Receipt Date: 20150916
  Transmission Date: 20151125
  Serious: Yes (Death, Life-Threatening, Hospitalization)
  Sender: FDA-Public Use
  Company Number: ES-CELGENE-ESP-2015041219

PATIENT
  Age: 63 Year
  Sex: Female
  Weight: 61 kg

DRUGS (11)
  1. COLISTIN [Concomitant]
     Active Substance: COLISTIN
     Indication: ANXIETY
     Route: 055
     Dates: start: 20150422, end: 20150424
  2. DEXAMETHASONE. [Suspect]
     Active Substance: DEXAMETHASONE
     Indication: PLASMA CELL MYELOMA
     Route: 048
     Dates: start: 20150303, end: 20150331
  3. DEXAMETHASONE. [Suspect]
     Active Substance: DEXAMETHASONE
     Route: 048
     Dates: end: 20150417
  4. CHLORMETHIAZOLE [Concomitant]
     Indication: ANXIETY
     Dosage: 4 DROPS
     Route: 048
     Dates: start: 20150418, end: 20150420
  5. VELCADE [Suspect]
     Active Substance: BORTEZOMIB
     Route: 058
     Dates: end: 20150424
  6. REVLIMID [Suspect]
     Active Substance: LENALIDOMIDE
     Route: 048
     Dates: end: 20150417
  7. REVLIMID [Suspect]
     Active Substance: LENALIDOMIDE
     Route: 048
     Dates: end: 20150424
  8. VELCADE [Suspect]
     Active Substance: BORTEZOMIB
     Route: 058
     Dates: end: 20150417
  9. VELCADE [Suspect]
     Active Substance: BORTEZOMIB
     Indication: PLASMA CELL MYELOMA
     Route: 058
     Dates: start: 20150303, end: 20150331
  10. REVLIMID [Suspect]
     Active Substance: LENALIDOMIDE
     Indication: PLASMA CELL MYELOMA
     Route: 048
     Dates: start: 20150303, end: 20150331
  11. DEXAMETHASONE. [Suspect]
     Active Substance: DEXAMETHASONE
     Route: 048
     Dates: end: 20150424

REACTIONS (2)
  - Septic shock [Fatal]
  - Blepharitis [Recovering/Resolving]

NARRATIVE: CASE EVENT DATE: 20150331
